FAERS Safety Report 19497822 (Version 1)
Quarter: 2021Q3

REPORT INFORMATION
  Report Type: Spontaneous
  Country: DE (occurrence: DE)
  Receive Date: 20210706
  Receipt Date: 20210706
  Transmission Date: 20211014
  Serious: Yes (Hospitalization)
  Sender: FDA-Public Use
  Company Number: DE-TEVA-2021-DE-1929836

PATIENT
  Age: 63 Year
  Sex: Male
  Weight: 90 kg

DRUGS (4)
  1. IBUPROFEN. [Suspect]
     Active Substance: IBUPROFEN
     Dosage: 400 MG, ONE TO THREE TIMES A DAY FOR THE LAST WEEK, MEDICATION ERRORS
     Route: 048
  2. ERYFER 100 [Concomitant]
     Dosage: 100 MILLIGRAM DAILY;  1?0?0?0
     Route: 048
  3. REKAWAN 1000MG [Concomitant]
     Dosage: 6 DOSAGE FORMS DAILY; 2?2?2?0
     Route: 048
  4. NICOTINELL 14MG/24STUNDEN [Concomitant]
     Dosage: 1 DOSAGE FORMS DAILY;
     Route: 062

REACTIONS (6)
  - Contraindicated product administered [Unknown]
  - Haematuria [Unknown]
  - Nocturia [Unknown]
  - Oedema peripheral [Unknown]
  - Product prescribing error [Unknown]
  - General physical health deterioration [Unknown]
